FAERS Safety Report 20193394 (Version 1)
Quarter: 2021Q4

REPORT INFORMATION
  Report Type: Spontaneous
  Country: US (occurrence: US)
  Receive Date: 20211216
  Receipt Date: 20211216
  Transmission Date: 20220303
  Serious: No
  Sender: FDA-Public Use
  Company Number: US-ENDO PHARMACEUTICALS INC-2021-011986

PATIENT
  Sex: Male

DRUGS (1)
  1. XIAFLEX [Suspect]
     Active Substance: COLLAGENASE CLOSTRIDIUM HISTOLYTICUM
     Indication: Peyronie^s disease
     Dosage: UNK UNKNOWN, (INJECTION ONE OF UNKNOWN CYCLE)
     Route: 065
     Dates: start: 20210921

REACTIONS (7)
  - Dysuria [Unknown]
  - Pyrexia [Unknown]
  - Chills [Unknown]
  - Nausea [Unknown]
  - Penile haemorrhage [Unknown]
  - Penile pain [Unknown]
  - Penile swelling [Unknown]

NARRATIVE: CASE EVENT DATE: 20210921
